FAERS Safety Report 5073936-9 (Version None)
Quarter: 2006Q3

REPORT INFORMATION
  Report Type: 
  Country: None (occurrence: None)
  Receive Date: 20060803
  Receipt Date: 20060721
  Transmission Date: 20061208
  Serious: Yes (Hospitalization)
  Sender: FDA-Public Use
  Company Number: 227803

PATIENT
  Age: 53 Year
  Sex: Male
  Weight: 86.2 kg

DRUGS (7)
  1. AVASTIN [Suspect]
     Indication: PANCREATIC NEOPLASM
     Dosage: 465 MG, Q2W, INTRAVENOUS
     Route: 042
     Dates: start: 20060424
  2. DEXAMETHASONE TAB [Suspect]
     Indication: PANCREATIC NEOPLASM
     Dosage: SEE IMAGE
     Dates: start: 20060424
  3. GRANISETRON (GRANISETRON HYDROCHLORIDE) [Suspect]
     Indication: PANCREATIC NEOPLASM
     Dosage: 1000 AUG, Q2W, INTRAVENOUS
     Route: 042
     Dates: start: 20060424
  4. OXALIPLATIN [Suspect]
     Indication: PANCREATIC NEOPLASM
     Dosage: 130 MG, Q2W, INTRAVENOUS
     Route: 042
     Dates: start: 20060424
  5. LEUCOVORIN CALCIUM [Suspect]
     Indication: PANCREATIC NEOPLASM
     Dosage: 400 MG, Q2W, INTRAVENOUS
     Route: 042
     Dates: start: 20060424
  6. FLUOROURACIL [Suspect]
     Indication: PANCREATIC NEOPLASM
     Dosage: 2400 MG
     Dates: start: 20060424
  7. PROTONIX [Concomitant]

REACTIONS (9)
  - ABDOMINAL PAIN [None]
  - ANAEMIA [None]
  - ASTHENIA [None]
  - FATIGUE [None]
  - GASTRITIS EROSIVE [None]
  - ILEUS [None]
  - LIVER ABSCESS [None]
  - PLATELET COUNT DECREASED [None]
  - PYREXIA [None]
